FAERS Safety Report 9202237 (Version 1)
Quarter: 2013Q1

REPORT INFORMATION
  Report Type: Spontaneous
  Country: US (occurrence: None)
  Receive Date: 20130326
  Receipt Date: 20130326
  Transmission Date: 20140127
  Serious: Yes (Other)
  Sender: FDA-Public Use
  Company Number: 2013P1003313

PATIENT
  Age: 7 Year
  Sex: Female
  Weight: 29.03 kg

DRUGS (3)
  1. MEPERIDINE HCL [Suspect]
     Indication: SEDATION
     Dates: start: 20130302, end: 20130302
  2. HYDROXYZINE [Concomitant]
  3. ARTICAINE W/EPINEPHRINE [Concomitant]

REACTIONS (3)
  - Abscess [None]
  - Swelling face [None]
  - Cellulitis [None]
